FAERS Safety Report 8847087 (Version 3)
Quarter: 2013Q3

REPORT INFORMATION
  Report Type: Spontaneous
  Country: BR (occurrence: None)
  Receive Date: 20121016
  Receipt Date: 20130705
  Transmission Date: 20140515
  Serious: Yes (Hospitalization, Other)
  Sender: FDA-Public Use
  Company Number: ENTC2012-0463

PATIENT
  Age: 80 Year
  Sex: Female

DRUGS (7)
  1. STALEVO (LEVODOPA, CARBIDOPA, ENTACAPONE) [Suspect]
     Indication: PARKINSON^S DISEASE
     Route: 048
  2. LOSARTAN [Concomitant]
  3. AMLODIPINE HYDROCHLORIDE [Concomitant]
  4. FUROSEMIDE [Concomitant]
  5. ATENOLOL [Concomitant]
  6. ASPIRINA INFANTIL [Concomitant]
  7. CITALOPRAM [Concomitant]

REACTIONS (12)
  - Drug dose omission [None]
  - Wrong technique in drug usage process [None]
  - Hypotension [None]
  - Visual acuity reduced [None]
  - Thrombosis [None]
  - Varicose vein [None]
  - Tremor [None]
  - Swelling [None]
  - Dry mouth [None]
  - Malaise [None]
  - Hypertension [None]
  - Gait disturbance [None]
